APPROVED DRUG PRODUCT: CLORAZEPATE DIPOTASSIUM
Active Ingredient: CLORAZEPATE DIPOTASSIUM
Strength: 3.75MG
Dosage Form/Route: TABLET;ORAL
Application: A071730 | Product #001
Applicant: QUANTUM PHARMICS LTD
Approved: Oct 26, 1987 | RLD: No | RS: No | Type: DISCN